FAERS Safety Report 21198307 (Version 2)
Quarter: 2022Q3

REPORT INFORMATION
  Report Type: Spontaneous
  Country: US (occurrence: US)
  Receive Date: 20220811
  Receipt Date: 20220824
  Transmission Date: 20221027
  Serious: No
  Sender: FDA-Public Use
  Company Number: US-TOLMAR, INC.-22US035674

PATIENT
  Age: 36 Year
  Sex: Female

DRUGS (1)
  1. ELIGARD [Suspect]
     Active Substance: LEUPROLIDE ACETATE
     Indication: Breast cancer
     Dosage: 7.5 MILLIGRAM, EVERY 28 DAYS
     Dates: start: 20220718

REACTIONS (2)
  - Off label use [Unknown]
  - Product administered by wrong person [Unknown]

NARRATIVE: CASE EVENT DATE: 20220713
